FAERS Safety Report 11646620 (Version 2)
Quarter: 2016Q2

REPORT INFORMATION
  Report Type: Spontaneous
  Country: US (occurrence: US)
  Receive Date: 20151020
  Receipt Date: 20160429
  Transmission Date: 20160815
  Serious: No
  Sender: FDA-Public Use
  Company Number: US-ROCHE-1626826

PATIENT
  Age: 81 Year
  Sex: Female
  Weight: 79 kg

DRUGS (3)
  1. ESBRIET [Suspect]
     Active Substance: PIRFENIDONE
     Dosage: 2 CAPSULES THRICE DAILY?TAKE 2 CAPSULES BY MOUTH IN THE MORNING, 2 CAPSULES IN THE AFTERNOON, AND 3
     Route: 048
     Dates: start: 20150721
  2. ESBRIET [Suspect]
     Active Substance: PIRFENIDONE
     Indication: IDIOPATHIC PULMONARY FIBROSIS
     Dosage: ON SPECIFIED DATES SHE RECEIVED OTHER REGIMEN.
     Route: 048
     Dates: start: 20150624, end: 20150723
  3. ESBRIET [Suspect]
     Active Substance: PIRFENIDONE
     Dosage: 3 CAPSULES THRICE DAILY
     Route: 048
     Dates: start: 20150702

REACTIONS (10)
  - Abnormal dreams [Unknown]
  - Anger [Unknown]
  - Rash [Recovering/Resolving]
  - Somnolence [Recovering/Resolving]
  - Muscular weakness [Unknown]
  - Nausea [Unknown]
  - Mood swings [Unknown]
  - Fatigue [Unknown]
  - Depression [Unknown]
  - Decreased appetite [Unknown]

NARRATIVE: CASE EVENT DATE: 20150723
